FAERS Safety Report 8604149-9 (Version None)
Quarter: 2012Q3

REPORT INFORMATION
  Report Type: 
  Country: None (occurrence: None)
  Receive Date: 20120806
  Receipt Date: 20120724
  Transmission Date: 20120928
  Serious: Yes (Life-Threatening)
  Sender: FDA-Public Use
  Company Number: 2012MA009359

PATIENT
  Age: 38 Year
  Sex: Female

DRUGS (1)
  1. PACLITAXEL [Suspect]
     Indication: CERVIX CARCINOMA
     Dosage: 295 MG;PRN;IV
     Route: 042
     Dates: start: 20120620, end: 20120620

REACTIONS (5)
  - HYPERSENSITIVITY [None]
  - ARTHRALGIA [None]
  - CYANOSIS CENTRAL [None]
  - HYPOTENSION [None]
  - DYSPNOEA [None]
